FAERS Safety Report 11532475 (Version 3)
Quarter: 2015Q4

REPORT INFORMATION
  Report Type: Spontaneous
  Country: US (occurrence: US)
  Receive Date: 20150921
  Receipt Date: 20151120
  Transmission Date: 20160304
  Serious: Yes (Other)
  Sender: FDA-Public Use
  Company Number: US-GLAXOSMITHKLINE-US2015133344

PATIENT
  Age: 49 Year
  Sex: Male

DRUGS (1)
  1. NICODERM CQ [Suspect]
     Active Substance: NICOTINE
     Indication: SMOKING CESSATION THERAPY
     Dosage: 14 MG, UNK

REACTIONS (9)
  - Asthma [Recovered/Resolved]
  - Nicotine dependence [Not Recovered/Not Resolved]
  - Application site scar [Unknown]
  - Application site infection [Recovered/Resolved]
  - Hypersensitivity [Recovered/Resolved]
  - Application site acne [Recovered/Resolved]
  - Heart rate decreased [Unknown]
  - Drug administration error [Unknown]
  - Staphylococcal infection [Recovered/Resolved]
